FAERS Safety Report 14799527 (Version 2)
Quarter: 2018Q2

REPORT INFORMATION
  Report Type: Spontaneous
  Country: US (occurrence: US)
  Receive Date: 20180424
  Receipt Date: 20180513
  Transmission Date: 20180711
  Serious: No
  Sender: FDA-Public Use
  Company Number: US-ELI_LILLY_AND_COMPANY-US201804009709

PATIENT
  Age: 75 Year
  Sex: Female

DRUGS (3)
  1. ASPIRIN                            /00002701/ [Concomitant]
     Active Substance: ASPIRIN
     Indication: PRODUCT USED FOR UNKNOWN INDICATION
     Dosage: 1 DF, DAILY
     Dates: start: 20171129
  2. EFFIENT [Suspect]
     Active Substance: PRASUGREL HYDROCHLORIDE
     Indication: STENT PATENCY MAINTENANCE
     Dosage: 10 MG, DAILY
     Route: 048
     Dates: start: 20171129, end: 20180406
  3. EFFIENT [Suspect]
     Active Substance: PRASUGREL HYDROCHLORIDE
     Dosage: 10 MG, DAILY
     Route: 048
     Dates: start: 20180409

REACTIONS (18)
  - Movement disorder [Unknown]
  - Diarrhoea [Recovering/Resolving]
  - Asthenia [Unknown]
  - Anxiety [Unknown]
  - Haemorrhage [Unknown]
  - Confusional state [Not Recovered/Not Resolved]
  - Dyspnoea [Unknown]
  - Visual impairment [Unknown]
  - Contusion [Unknown]
  - Amnesia [Not Recovered/Not Resolved]
  - Ageusia [Unknown]
  - Dehydration [Recovering/Resolving]
  - Dizziness [Unknown]
  - Cataract [Unknown]
  - Weight decreased [Recovering/Resolving]
  - Asthenia [Recovering/Resolving]
  - Urine abnormality [Recovering/Resolving]
  - Vaginal haemorrhage [Unknown]
